FAERS Safety Report 9804354 (Version 1)
Quarter: 2014Q1

REPORT INFORMATION
  Report Type: Spontaneous
  Country: CH (occurrence: None)
  Receive Date: 20140106
  Receipt Date: 20140106
  Transmission Date: 20141002
  Serious: Yes (Hospitalization)
  Sender: FDA-Public Use
  Company Number: 2013120076

PATIENT
  Age: 85 Year
  Sex: Female

DRUGS (3)
  1. TOREM (TORASEMIDE) [Suspect]
     Indication: ESSENTIAL HYPERTENSION
     Route: 048
     Dates: start: 2010, end: 20111013
  2. DIGOXIN [Suspect]
     Indication: ARRHYTHMIA
     Dosage: 0.125 MG  3 IN 1 D
     Route: 048
     Dates: start: 1996
  3. BELOC ZOK [Suspect]
     Indication: ESSENTIAL HYPERTENSION
     Route: 048
     Dates: start: 201004

REACTIONS (5)
  - Fall [None]
  - Loss of control of legs [None]
  - Vitamin D deficiency [None]
  - Orthostatic hypotension [None]
  - Femur fracture [None]
